FAERS Safety Report 7267532-2 (Version None)
Quarter: 2011Q1

REPORT INFORMATION
  Report Type: 
  Country: None (occurrence: None)
  Receive Date: 20110201
  Receipt Date: 20110118
  Transmission Date: 20110831
  Serious: Yes (Other)
  Sender: FDA-Public Use
  Company Number: US-CELGENEUS-163-21880-10121192

PATIENT
  Sex: Female
  Weight: 71.687 kg

DRUGS (22)
  1. REVLIMID [Suspect]
     Indication: MYELODYSPLASTIC SYNDROME
     Route: 048
     Dates: start: 20101118
  2. CALCIUM CARBONATE [Concomitant]
     Route: 048
  3. TYLENOL PM [Concomitant]
     Dosage: 2
     Route: 048
  4. NAPROXEN [Concomitant]
     Route: 048
  5. REVLIMID [Suspect]
     Indication: MYELOFIBROSIS
     Route: 048
     Dates: start: 20101216
  6. ASPIRIN [Concomitant]
     Route: 048
  7. VANICREAM [Concomitant]
     Route: 061
  8. SIMVASTATIN [Concomitant]
     Route: 048
  9. IMITREX [Concomitant]
     Route: 048
  10. TRAMADOL HCL [Concomitant]
     Indication: PAIN
     Route: 048
  11. AMITRIPTYLINE HCL [Concomitant]
     Route: 048
  12. IBUPROFEN [Concomitant]
     Route: 048
  13. ZOLOFT [Concomitant]
     Route: 048
  14. NITROGLYCERIN [Concomitant]
     Route: 060
  15. VITAMIN E [Concomitant]
     Dosage: 400 UNIT
     Route: 048
  16. LEVOTHYROXINE SODIUM [Concomitant]
     Route: 048
  17. COZAAR [Concomitant]
     Route: 048
  18. BETAMETHASONE DIPROPIONATE [Concomitant]
     Route: 061
  19. VITAMIN D [Concomitant]
     Dosage: 1000 UNIT, 2 CAPSULES
     Route: 048
  20. HYDROCHLOROTHIAZIDE [Concomitant]
     Route: 048
  21. PRILOSEC [Concomitant]
     Route: 048
  22. THERMAZENE [Concomitant]
     Route: 061

REACTIONS (6)
  - ATROPHIC VULVOVAGINITIS [None]
  - MUSCLE SPASMS [None]
  - URINARY TRACT INFECTION [None]
  - NAUSEA [None]
  - HEADACHE [None]
  - HYPERHIDROSIS [None]
